APPROVED DRUG PRODUCT: TERAZOSIN HYDROCHLORIDE
Active Ingredient: TERAZOSIN HYDROCHLORIDE
Strength: EQ 5MG BASE
Dosage Form/Route: CAPSULE;ORAL
Application: A075140 | Product #001
Applicant: PHARMOBEDIENT CONSULTING LLC
Approved: Feb 11, 2000 | RLD: No | RS: No | Type: DISCN